FAERS Safety Report 23937603 (Version 1)
Quarter: 2024Q2

REPORT INFORMATION
  Report Type: Spontaneous
  Country: CN (occurrence: CN)
  Receive Date: 20240604
  Receipt Date: 20240604
  Transmission Date: 20240715
  Serious: Yes (Other)
  Sender: FDA-Public Use
  Company Number: CN-MYLANLABS-2024M1049758

PATIENT
  Age: 57 Year
  Sex: Male
  Weight: 58 kg

DRUGS (2)
  1. CARDURA XL [Suspect]
     Active Substance: DOXAZOSIN MESYLATE
     Indication: Dysuria
     Dosage: 4 MILLIGRAM, QD
     Route: 048
     Dates: start: 20240527, end: 20240528
  2. Jin qian cao [Concomitant]
     Indication: Dysuria
     Dosage: 10 GRAM, TID
     Route: 048
     Dates: start: 20240527, end: 20240528

REACTIONS (1)
  - Depressed level of consciousness [Recovering/Resolving]

NARRATIVE: CASE EVENT DATE: 20240527
